FAERS Safety Report 22142425 (Version 1)
Quarter: 2023Q1

REPORT INFORMATION
  Report Type: Report from Study
  Country: US (occurrence: US)
  Receive Date: 20230327
  Receipt Date: 20230327
  Transmission Date: 20230417
  Serious: Yes (Other)
  Sender: FDA-Public Use
  Company Number: US-ALNYLAM PHARMACEUTICALS, INC.-ALN-2023-001274

PATIENT

DRUGS (2)
  1. GIVLAARI [Suspect]
     Active Substance: GIVOSIRAN SODIUM
     Indication: Porphyria
     Dosage: UNK
     Route: 065
     Dates: start: 20200326
  2. GIVLAARI [Suspect]
     Active Substance: GIVOSIRAN SODIUM
     Dosage: UNK
     Route: 065
     Dates: start: 20230209

REACTIONS (2)
  - Seizure [Unknown]
  - Product dose omission issue [Unknown]

NARRATIVE: CASE EVENT DATE: 20230309
